FAERS Safety Report 5521863-2 (Version None)
Quarter: 2007Q4

REPORT INFORMATION
  Report Type: 
  Country: None (occurrence: None)
  Receive Date: 20071120
  Receipt Date: 20071109
  Transmission Date: 20080405
  Serious: Yes (Other)
  Sender: FDA-Public Use
  Company Number: PHBS2007US18887

PATIENT
  Age: 12 Year
  Sex: Female

DRUGS (9)
  1. PREDNISONE TAB [Suspect]
     Route: 065
  2. AZATHIOPRINE [Suspect]
     Route: 065
  3. NIFEDIPINE [Concomitant]
  4. RANITIDINE HCL [Concomitant]
  5. SULFAMETHOXAZOLE AND TRIMETHOPRIM [Concomitant]
  6. STEROIDS NOS [Concomitant]
  7. FUROSEMIDE [Concomitant]
  8. IMMUNOGLOBULINS [Suspect]
     Dosage: UNK, QMO
     Route: 042
  9. CYCLOSPORINE [Suspect]
     Indication: LUNG TRANSPLANT
     Route: 065

REACTIONS (2)
  - POLYP [None]
  - POLYPECTOMY [None]
